FAERS Safety Report 22231148 (Version 1)
Quarter: 2023Q2

REPORT INFORMATION
  Report Type: Spontaneous
  Country: US (occurrence: None)
  Receive Date: 20230420
  Receipt Date: 20230420
  Transmission Date: 20230721
  Serious: No
  Sender: FDA-Public Use
  Company Number: US-ROCHE-3264341

PATIENT
  Sex: Female
  Weight: 74.84 kg

DRUGS (5)
  1. XOFLUZA [Suspect]
     Active Substance: BALOXAVIR MARBOXIL
     Indication: Influenza
     Route: 048
     Dates: start: 20230105, end: 20230105
  2. VITAMIN C [Concomitant]
     Active Substance: ASCORBIC ACID
     Route: 048
  3. ERGOCALCIFEROL [Concomitant]
     Active Substance: ERGOCALCIFEROL
     Dosage: 1000 UNIT NOT REPORTED
     Route: 048
  4. MAGNESIUM [Concomitant]
     Active Substance: MAGNESIUM
     Indication: Pain in extremity
     Dosage: 250 UNIT NOT REPORTED
     Route: 048
  5. ZINC [Concomitant]
     Active Substance: ZINC
     Dosage: 50 UNIT NOT REPORTED
     Route: 048
     Dates: start: 20230104

REACTIONS (5)
  - Laryngitis [Not Recovered/Not Resolved]
  - Cough [Not Recovered/Not Resolved]
  - Ear infection [Not Recovered/Not Resolved]
  - Conjunctivitis [Not Recovered/Not Resolved]
  - Drug ineffective [Not Recovered/Not Resolved]

NARRATIVE: CASE EVENT DATE: 20230105
